FAERS Safety Report 10069688 (Version 1)
Quarter: 2014Q2

REPORT INFORMATION
  Report Type: Spontaneous
  Country: US (occurrence: US)
  Receive Date: 20140410
  Receipt Date: 20140410
  Transmission Date: 20141212
  Serious: Yes (Hospitalization, Other)
  Sender: FDA-Public Use
  Company Number: US-AMGEN INC.-USASP2014025178

PATIENT
  Age: 64 Year
  Sex: Male

DRUGS (1)
  1. ENBREL [Suspect]
     Indication: PSORIASIS
     Dosage: UNK, QWK
     Route: 065
     Dates: start: 2009, end: 2010

REACTIONS (3)
  - Renal impairment [Recovered/Resolved]
  - Diabetes mellitus [Unknown]
  - Psoriasis [Not Recovered/Not Resolved]
